FAERS Safety Report 6668486-X (Version None)
Quarter: 2010Q2

REPORT INFORMATION
  Report Type: 
  Country: None (occurrence: None)
  Receive Date: 20100406
  Receipt Date: 20100401
  Transmission Date: 20101027
  Serious: Yes (Life-Threatening, Hospitalization)
  Sender: FDA-Public Use
  Company Number: PHHY2010FR20246

PATIENT
  Sex: Female

DRUGS (2)
  1. EXJADE [Suspect]
     Dosage: UNK
     Dates: start: 20100316, end: 20100328
  2. NEORECORMON [Suspect]

REACTIONS (8)
  - CARDIAC ARREST [None]
  - DRUG RASH WITH EOSINOPHILIA AND SYSTEMIC SYMPTOMS [None]
  - EYELID OEDEMA [None]
  - FACE OEDEMA [None]
  - PYREXIA [None]
  - RASH MACULO-PAPULAR [None]
  - SHOCK [None]
  - TONGUE OEDEMA [None]
